FAERS Safety Report 8310330-9 (Version None)
Quarter: 2012Q2

REPORT INFORMATION
  Report Type: 
  Country: None (occurrence: None)
  Receive Date: 20120425
  Receipt Date: 20120419
  Transmission Date: 20120825
  Serious: Yes (Death)
  Sender: FDA-Public Use
  Company Number: PHHO2012US006256

PATIENT
  Sex: Male
  Weight: 107.6 kg

DRUGS (4)
  1. VALSARTAN [Suspect]
     Dosage: 320 MG, QD
     Route: 048
     Dates: start: 20111107, end: 20111204
  2. VALSARTAN [Suspect]
     Dosage: 320 MG, QD
     Route: 048
     Dates: start: 20111205
  3. REQUIP [Concomitant]
     Indication: RESTLESS LEGS SYNDROME
     Dosage: 1 MG, QD
     Route: 048
     Dates: start: 20091207
  4. VALSARTAN [Suspect]
     Indication: HYPERTENSION
     Dosage: 160 MG, QD
     Route: 048
     Dates: start: 20111024, end: 20111106

REACTIONS (1)
  - CARDIAC ARREST [None]
